FAERS Safety Report 4734130-1 (Version None)
Quarter: 2005Q3

REPORT INFORMATION
  Report Type: 
  Country: None (occurrence: None)
  Receive Date: 20050803
  Receipt Date: 20050803
  Transmission Date: 20060218
  Serious: No
  Sender: FDA-Public Use
  Company Number: None

PATIENT
  Age: 51 Year
  Sex: Male
  Weight: 98.43 kg

DRUGS (4)
  1. ELOXATIN [Suspect]
     Indication: COLON CANCER
     Dosage: 178.5MG EVERY 2 WEEKS INTRAVENOUS
     Route: 042
     Dates: start: 20040414, end: 20050725
  2. FLUOROURACIL [Concomitant]
  3. LEUCOVORIN [Concomitant]
  4. AVASTIN [Concomitant]

REACTIONS (4)
  - ERYTHEMA [None]
  - INFUSION RELATED REACTION [None]
  - PRURITUS [None]
  - URTICARIA [None]
